FAERS Safety Report 25210244 (Version 1)
Quarter: 2025Q2

REPORT INFORMATION
  Report Type: Spontaneous
  Country: US (occurrence: US)
  Receive Date: 20250417
  Receipt Date: 20250417
  Transmission Date: 20250717
  Serious: No
  Sender: STALLERGENES
  Company Number: US-STALCOR-2025-AER-01075

PATIENT
  Sex: Male

DRUGS (17)
  1. CRAB [Suspect]
     Active Substance: CRAB LEG, UNSPECIFIED
     Indication: Product used for unknown indication
  2. OYSTER [Suspect]
     Active Substance: OYSTER, UNSPECIFIED
     Indication: Product used for unknown indication
  3. SHRIMP (COMMON SHRIMP) [Suspect]
     Active Substance: COMMON SHRIMP
     Indication: Product used for unknown indication
  4. LOBSTER [Suspect]
     Active Substance: LOBSTER, UNSPECIFIED
     Indication: Product used for unknown indication
  5. SCALLOP [Suspect]
     Active Substance: SCALLOP, UNSPECIFIED
     Indication: Product used for unknown indication
  6. CLAM [Suspect]
     Active Substance: QUAHOG, UNSPECIFIED
     Indication: Product used for unknown indication
  7. TROUT [Concomitant]
     Active Substance: TROUT, UNSPECIFIED
     Indication: Product used for unknown indication
  8. TUNA [Concomitant]
     Active Substance: TUNA, UNSPECIFIED
     Indication: Product used for unknown indication
  9. SALMON [Concomitant]
     Active Substance: SALMON, UNSPECIFIED
     Indication: Product used for unknown indication
  10. PERCH [Concomitant]
     Active Substance: PERCH, UNSPECIFIED
     Indication: Product used for unknown indication
  11. MACKEREL [Concomitant]
     Active Substance: MACKEREL, UNSPECIFIED
     Indication: Product used for unknown indication
  12. FLOUNDER [Concomitant]
     Active Substance: FLOUNDER
     Indication: Product used for unknown indication
  13. COD [Concomitant]
     Active Substance: ATLANTIC COD
     Indication: Product used for unknown indication
  14. CATFISH [Concomitant]
     Indication: Product used for unknown indication
  15. BASS [Concomitant]
     Indication: Product used for unknown indication
  16. PEANUT [Concomitant]
     Active Substance: PEANUT
     Indication: Product used for unknown indication
  17. TREE NUTS [Concomitant]
     Indication: Product used for unknown indication

REACTIONS (2)
  - Drug ineffective [Unknown]
  - No adverse event [Unknown]
